FAERS Safety Report 5514990-7 (Version None)
Quarter: 2007Q4

REPORT INFORMATION
  Report Type: 
  Country: None (occurrence: None)
  Receive Date: 20071113
  Receipt Date: 20061103
  Transmission Date: 20080405
  Serious: No
  Sender: FDA-Public Use
  Company Number: A0626208A

PATIENT
  Sex: Female

DRUGS (1)
  1. COREG [Suspect]

REACTIONS (4)
  - CHEST PAIN [None]
  - DYSPNOEA [None]
  - NECK PAIN [None]
  - PAIN IN EXTREMITY [None]
